FAERS Safety Report 26050269 (Version 2)
Quarter: 2025Q4

REPORT INFORMATION
  Report Type: Spontaneous
  Country: US (occurrence: US)
  Receive Date: 20251116
  Receipt Date: 20251204
  Transmission Date: 20260119
  Serious: Yes (Hospitalization)
  Sender: TEVA
  Company Number: US-TEVA-VS-3392366

PATIENT
  Age: 14 Year
  Sex: Male

DRUGS (7)
  1. PREDNISONE [Suspect]
     Active Substance: PREDNISONE
     Indication: Immunosuppressant drug therapy
     Route: 065
     Dates: start: 2021
  2. NIFEDIPINE [Suspect]
     Active Substance: NIFEDIPINE
     Indication: Procedural hypertension
     Route: 065
     Dates: start: 202206, end: 2024
  3. TACROLIMUS [Suspect]
     Active Substance: TACROLIMUS
     Indication: Immunosuppressant drug therapy
     Route: 065
     Dates: start: 2021
  4. MYCOPHENOLATE MOFETIL [Suspect]
     Active Substance: MYCOPHENOLATE MOFETIL
     Indication: Immunosuppressant drug therapy
     Dosage: TWO TABLETS EVERY EVENING
     Route: 048
     Dates: start: 2021
  5. MYCOPHENOLATE MOFETIL [Suspect]
     Active Substance: MYCOPHENOLATE MOFETIL
     Indication: Immunosuppressant drug therapy
     Dosage: TIME INTERVAL: 0.33333333 DAYS: THREE TABLETS EVERY MORNING
     Route: 048
     Dates: start: 2021
  6. LAPINE T-LYMPHOCYTE IMMUNE GLOBULIN [Concomitant]
     Active Substance: LAPINE T-LYMPHOCYTE IMMUNE GLOBULIN
     Indication: Immunosuppressant drug therapy
     Dosage: FOUR DOSES
     Route: 065
     Dates: start: 2021, end: 2021
  7. AMLODIPINE [Concomitant]
     Active Substance: AMLODIPINE BESYLATE
     Indication: Procedural hypertension
     Route: 065
     Dates: end: 202206

REACTIONS (5)
  - Gingival hypertrophy [Recovered/Resolved]
  - Sleep-related breathing disorder [Recovered/Resolved]
  - Weight decreased [Recovered/Resolved]
  - Tonsillar hypertrophy [Recovered/Resolved]
  - Mastication disorder [Recovered/Resolved]

NARRATIVE: CASE EVENT DATE: 20240101
